FAERS Safety Report 10898750 (Version 1)
Quarter: 2015Q1

REPORT INFORMATION
  Report Type: Report from Study
  Country: US (occurrence: US)
  Receive Date: 20150309
  Receipt Date: 20150309
  Transmission Date: 20150721
  Serious: No
  Sender: FDA-Public Use
  Company Number: US-ABBVIE-14P-163-1242577-00

PATIENT
  Age: 39 Year
  Sex: Female

DRUGS (3)
  1. NORETHINDRONE ACETATE. [Suspect]
     Active Substance: NORETHINDRONE ACETATE
     Indication: ENDOMETRIOSIS
     Route: 048
     Dates: start: 20140527
  2. ALEVE [Concomitant]
     Active Substance: NAPROXEN SODIUM
     Indication: PAIN
     Dosage: AS NEEDED
  3. LUPRON DEPOT [Suspect]
     Active Substance: LEUPROLIDE ACETATE
     Indication: ENDOMETRIOSIS
     Dates: start: 20140512

REACTIONS (6)
  - Vaginal haemorrhage [Not Recovered/Not Resolved]
  - Hot flush [Recovered/Resolved]
  - Headache [Not Recovered/Not Resolved]
  - Metrorrhagia [Recovered/Resolved]
  - Muscle spasms [Not Recovered/Not Resolved]
  - Drug dose omission [Unknown]

NARRATIVE: CASE EVENT DATE: 201405
